FAERS Safety Report 4579989-6 (Version None)
Quarter: 2005Q1

REPORT INFORMATION
  Report Type: 
  Country: None (occurrence: None)
  Receive Date: 20050214
  Receipt Date: 20050204
  Transmission Date: 20050727
  Serious: Yes (Other)
  Sender: FDA-Public Use
  Company Number: JP-ROCHE-394398

PATIENT
  Age: 40 Year
  Sex: Female

DRUGS (6)
  1. HORIZON [Suspect]
     Indication: DRUG USE FOR UNKNOWN INDICATION
     Route: 065
  2. PONTAL [Suspect]
     Indication: DRUG USE FOR UNKNOWN INDICATION
     Route: 048
  3. MARZULENE-S [Suspect]
     Indication: DRUG USE FOR UNKNOWN INDICATION
     Route: 048
  4. UNASYN [Suspect]
     Indication: DRUG USE FOR UNKNOWN INDICATION
     Route: 042
  5. SLOW-K [Concomitant]
     Route: 048
  6. SODIUM BICARBONATE IN PLASTIC CONTAINER [Concomitant]

REACTIONS (2)
  - MYCOPLASMA INFECTION [None]
  - TOXIC EPIDERMAL NECROLYSIS [None]
